FAERS Safety Report 9527586 (Version 1)
Quarter: 2013Q3

REPORT INFORMATION
  Report Type: Spontaneous
  Country: US (occurrence: None)
  Receive Date: 20130913
  Receipt Date: 20130913
  Transmission Date: 20140515
  Serious: No
  Sender: FDA-Public Use
  Company Number: None

PATIENT
  Age: 75 Year
  Sex: 0

DRUGS (1)
  1. PROLIA [Suspect]
     Indication: OSTEOPOROSIS
     Dosage: INJECTION INTO THE MUSCLE
     Dates: start: 20130129, end: 20130729

REACTIONS (3)
  - Heart rate increased [None]
  - Eczema [None]
  - Palpitations [None]
